FAERS Safety Report 5489322-3 (Version None)
Quarter: 2007Q4

REPORT INFORMATION
  Report Type: 
  Country: None (occurrence: None)
  Receive Date: 20071005
  Receipt Date: 20070621
  Transmission Date: 20080405
  Serious: No
  Sender: FDA-Public Use
  Company Number: PHEH2007US09122

PATIENT
  Age: 89 Year
  Sex: Male

DRUGS (2)
  1. TEKTURNA [Suspect]
     Dosage: 150, QD, ORAL
     Route: 048
     Dates: start: 20070607, end: 20070621
  2. ANTIHYPERTENSIVES (NO INGREDIENTS/SUBSTANCES) [Concomitant]

REACTIONS (1)
  - ECCHYMOSIS [None]
